FAERS Safety Report 9394179 (Version 1)
Quarter: 2013Q3

REPORT INFORMATION
  Report Type: Spontaneous
  Country: FR (occurrence: FR)
  Receive Date: 20130711
  Receipt Date: 20130711
  Transmission Date: 20140515
  Serious: Yes (Life-Threatening, Other)
  Sender: FDA-Public Use
  Company Number: FR-MERCK-1307FRA002846

PATIENT
  Age: 31 Year
  Sex: Female

DRUGS (4)
  1. ISENTRESS [Suspect]
     Dosage: 800 MG, UNK
     Route: 048
     Dates: start: 20130515, end: 20130519
  2. ZERIT [Suspect]
     Dosage: 20 MG, QD
     Route: 048
     Dates: start: 20130515, end: 20130519
  3. KALETRA [Suspect]
     Dosage: 400 MG, QD
     Route: 048
     Dates: start: 20130515, end: 20130519
  4. BACTRIM [Concomitant]

REACTIONS (1)
  - Epilepsy [Recovered/Resolved]
